FAERS Safety Report 4956266-2 (Version None)
Quarter: 2006Q1

REPORT INFORMATION
  Report Type: 
  Country: None (occurrence: None)
  Receive Date: 20060329
  Receipt Date: 20060317
  Transmission Date: 20060701
  Serious: Yes (Hospitalization)
  Sender: FDA-Public Use
  Company Number: KR-JNJFOC-20060301687

PATIENT
  Sex: Female
  Weight: 56 kg

DRUGS (3)
  1. REMINYL [Suspect]
     Route: 048
  2. LITHIUM [Concomitant]
     Route: 048
  3. GINEXIN-F [Concomitant]
     Route: 048

REACTIONS (3)
  - DELIRIUM [None]
  - HYDROCEPHALUS [None]
  - SHUNT MALFUNCTION [None]
